FAERS Safety Report 23978674 (Version 1)
Quarter: 2024Q2

REPORT INFORMATION
  Report Type: Spontaneous
  Country: US (occurrence: US)
  Receive Date: 20240614
  Receipt Date: 20240614
  Transmission Date: 20240716
  Serious: No
  Sender: FDA-Public Use
  Company Number: US-ABBVIE-5796414

PATIENT
  Sex: Female

DRUGS (2)
  1. BOTOX COSMETIC [Suspect]
     Active Substance: ONABOTULINUMTOXINA
     Indication: Lip cosmetic procedure
     Dosage: TIME INTERVAL: AS NECESSARY: 8 UNITS
     Route: 065
  2. JUVEDERM ULTRA XC [Suspect]
     Active Substance: HYALURONIC ACID\LIDOCAINE HYDROCHLORIDE
     Indication: Product used for unknown indication
     Dosage: 5-4-24 INJECTED 1 ML ULTRA XC VERMILION BORDERS
     Route: 065

REACTIONS (2)
  - Oedema [Unknown]
  - Contusion [Recovering/Resolving]

NARRATIVE: CASE EVENT DATE: 20240101
